FAERS Safety Report 19724394 (Version 7)
Quarter: 2022Q4

REPORT INFORMATION
  Report Type: Report from Study
  Country: US (occurrence: US)
  Receive Date: 20210820
  Receipt Date: 20221216
  Transmission Date: 20230112
  Serious: Yes (Other)
  Sender: FDA-Public Use
  Company Number: NVSC2021US187884

PATIENT
  Age: 59 Year
  Sex: Female

DRUGS (3)
  1. MAYZENT [Suspect]
     Active Substance: SIPONIMOD
     Indication: Relapsing-remitting multiple sclerosis
     Dosage: 2 MG, QD
     Route: 048
     Dates: start: 20210812
  2. MAYZENT [Suspect]
     Active Substance: SIPONIMOD
     Indication: Clinically isolated syndrome
  3. MAYZENT [Suspect]
     Active Substance: SIPONIMOD
     Indication: Secondary progressive multiple sclerosis

REACTIONS (11)
  - Multiple sclerosis relapse [Not Recovered/Not Resolved]
  - Urinary tract infection [Recovering/Resolving]
  - Burning sensation [Recovering/Resolving]
  - Sensitive skin [Recovering/Resolving]
  - Chest discomfort [Recovering/Resolving]
  - Dyspnoea [Recovering/Resolving]
  - Stubbornness [Recovering/Resolving]
  - Memory impairment [Unknown]
  - Fatigue [Recovering/Resolving]
  - Daydreaming [Unknown]
  - Gastrointestinal disorder [Unknown]

NARRATIVE: CASE EVENT DATE: 20211010
